FAERS Safety Report 6576626-6 (Version None)
Quarter: 2010Q1

REPORT INFORMATION
  Report Type: 
  Country: None (occurrence: None)
  Receive Date: 20100210
  Receipt Date: 20100205
  Transmission Date: 20100710
  Serious: Yes (Other)
  Sender: FDA-Public Use
  Company Number: HR-BRISTOL-MYERS SQUIBB COMPANY-14965891

PATIENT
  Age: 81 Year
  Sex: Female

DRUGS (4)
  1. LITALIR CAPS 500 MG [Suspect]
     Indication: POLYCYTHAEMIA VERA
     Dosage: STOPPED ON 19JAN2010, RESTARTED ON UNK DATE DURATION 1.5 YEARS
     Route: 048
     Dates: start: 20080101
  2. FUROSEMIDE [Concomitant]
  3. ISOPTIN [Concomitant]
  4. SPIRONOLACTONE [Concomitant]

REACTIONS (3)
  - DEHYDRATION [None]
  - HYPERKALAEMIA [None]
  - RENAL FAILURE CHRONIC [None]
